FAERS Safety Report 7353986-X (Version None)
Quarter: 2011Q1

REPORT INFORMATION
  Report Type: 
  Country: None (occurrence: None)
  Receive Date: 20110315
  Receipt Date: 20110302
  Transmission Date: 20110831
  Serious: Yes (Hospitalization, Other)
  Sender: FDA-Public Use
  Company Number: PHHY2010DE06392

PATIENT
  Sex: Female
  Weight: 68 kg

DRUGS (17)
  1. SIFROL [Concomitant]
     Dosage: 0.18 MG, PER DAY
     Dates: start: 20070701
  2. ALPHA-RECEPTOR BLOCKER [Concomitant]
     Dosage: UNK
     Dates: start: 20090710
  3. ALISKIREN [Suspect]
     Indication: HYPERTENSION
     Dosage: 150 MG, QD
     Route: 048
     Dates: start: 20080403, end: 20081031
  4. ALISKIREN [Suspect]
     Dosage: 300 MG, QD
     Route: 048
     Dates: start: 20081031, end: 20081212
  5. METOHEXAL [Concomitant]
     Dosage: 95 MG, PER DAY
     Route: 048
     Dates: start: 20000101
  6. OPIPRAMOL [Concomitant]
     Indication: DEPRESSION
     Dosage: 50 MG, PER DAY
     Route: 048
     Dates: start: 20080703, end: 20081212
  7. RAMIPRIL [Concomitant]
     Dosage: 5 MG, PER DAY
     Route: 048
     Dates: start: 20091222
  8. AMLODIPINE [Concomitant]
     Dosage: 5 MG, PER DAY
     Route: 048
     Dates: start: 20101004
  9. CITALOPRAM HYDROBROMIDE [Concomitant]
     Indication: DEPRESSION
     Dosage: 20 MG, PER DAY
     Route: 048
     Dates: start: 20090112
  10. DOXAZOSIN [Concomitant]
     Dosage: 4 MG, PER DAY
     Route: 048
     Dates: start: 20100302
  11. OPIPRAMOL [Concomitant]
     Dosage: 100 MG, PER DAY
     Route: 048
     Dates: start: 20080313, end: 20090112
  12. BIPRETERAX [Concomitant]
     Dosage: 4 MG, PER DAY
     Dates: start: 20081030, end: 20081216
  13. RAMIPRIL [Concomitant]
     Dosage: 25/5 MG PER DAY
     Route: 048
     Dates: start: 20091222
  14. FENOFIBRATE [Concomitant]
     Dosage: 200 MG, PER DAY
     Dates: start: 20050330
  15. DIURETICS [Concomitant]
  16. NSAID'S [Concomitant]
  17. AMLODIPINE [Concomitant]
     Dosage: UNK
     Dates: start: 20070703, end: 20090109

REACTIONS (7)
  - HYPERTENSIVE CRISIS [None]
  - LEFT VENTRICULAR HYPERTROPHY [None]
  - ATRIAL FIBRILLATION [None]
  - HEART DISEASE CONGENITAL [None]
  - CHEST PAIN [None]
  - AUTONOMIC NERVOUS SYSTEM IMBALANCE [None]
  - DYSPNOEA [None]
